FAERS Safety Report 24840566 (Version 1)
Quarter: 2025Q1

REPORT INFORMATION
  Report Type: Spontaneous
  Country: GB (occurrence: GB)
  Receive Date: 20250114
  Receipt Date: 20250114
  Transmission Date: 20250408
  Serious: Yes (Hospitalization, Disabling, Other)
  Sender: ORGANON
  Company Number: None

PATIENT

DRUGS (5)
  1. ELOCON [Suspect]
     Active Substance: MOMETASONE FUROATE
  2. ELIDEL [Suspect]
     Active Substance: PIMECROLIMUS
  3. PROTOPIC [Suspect]
     Active Substance: TACROLIMUS
  4. BETAMETHASONE [Suspect]
     Active Substance: BETAMETHASONE
  5. HYDROCORTISONE [Suspect]
     Active Substance: HYDROCORTISONE

REACTIONS (1)
  - Skin swelling [Not Recovered/Not Resolved]

NARRATIVE: CASE EVENT DATE: 20240201
